FAERS Safety Report 8543737 (Version 3)
Quarter: 2012Q4

REPORT INFORMATION
  Report Type: 
  Country: US (occurrence: US)
  Receive Date: 20120503
  Receipt Date: 20121126
  Transmission Date: 20130627
  Serious: Yes (Hospitalization, Other)
  Sender: FDA-Public Use
  Company Number: US-BAYER-2012-042555

PATIENT
  Age: 35 Year
  Sex: Female
  Weight: 102 kg

DRUGS (15)
  1. YAZ [Suspect]
     Indication: CONTRACEPTION
     Dosage: UNK
     Dates: start: 20061012, end: 20081111
  2. YASMIN [Suspect]
     Indication: CONTRACEPTION
     Dosage: UNK
     Dates: start: 20030617, end: 20061011
  3. FLUOXETINE [Concomitant]
     Indication: ANXIETY
     Dosage: 80 mg, daily
     Dates: start: 2004
  4. VENTOLIN [Concomitant]
     Indication: ASTHMA
     Dosage: UNK
     Dates: start: 2008
  5. CLONAZEPAM [Concomitant]
     Indication: ANXIETY
     Dosage: UNK
     Dates: start: 2008
  6. HYDROCODONE W/ACETAMINOPHEN [Concomitant]
     Indication: PAIN
     Dosage: 5-325 1 to 2 tablets every 4-6 hours if needed
  7. FLUCONAZOLE [Concomitant]
     Dosage: 150 mg, take 1 immediately
  8. SULFAMETHOXAZOLE W/TRIMETHOPRIM [Concomitant]
     Dosage: 1 tablet twice a day
  9. FENTANYL [Concomitant]
     Dosage: 25 mcg/hr
  10. ONDANSETRON [Concomitant]
     Dosage: 4 mg dissolve 2 tablets on tongue every 8 hours if needed
  11. PROMETHAZINE [Concomitant]
     Dosage: 25 mg, 1 tablets Q4HR, if needed
  12. ACETAMINOPHEN W/PROPOXYPHENE [Concomitant]
     Indication: PAIN
     Dosage: 100-650 1-2 tablets every 4-6 hours if needed
  13. ULTRAM [Concomitant]
     Dosage: 50 mg, UNK
  14. SEROQUEL [Concomitant]
     Dosage: 50 mg q hs ( every night)
  15. PERCOCET [Concomitant]
     Dosage: UNK UNK, PRN
     Dates: start: 20080910

REACTIONS (8)
  - Pulmonary embolism [Recovered/Resolved]
  - Dyspnoea [Recovered/Resolved]
  - Chest pain [Recovered/Resolved]
  - Thrombophlebitis superficial [None]
  - Pain [None]
  - Injury [None]
  - Deep vein thrombosis [None]
  - Pulmonary embolism [Recovered/Resolved]
